FAERS Safety Report 12540096 (Version 2)
Quarter: 2016Q4

REPORT INFORMATION
  Report Type: Spontaneous
  Country: FR (occurrence: FR)
  Receive Date: 20160708
  Receipt Date: 20161021
  Transmission Date: 20170207
  Serious: Yes (Hospitalization)
  Sender: FDA-Public Use
  Company Number: FR-LUNDBECK-DKLU2016095

PATIENT
  Age: 33 Year
  Sex: Female

DRUGS (2)
  1. KEPPRA [Suspect]
     Active Substance: LEVETIRACETAM
     Indication: SEIZURE
     Route: 048
     Dates: start: 20160528, end: 20160603
  2. URBANYL [Suspect]
     Active Substance: CLOBAZAM
     Indication: PRODUCT USED FOR UNKNOWN INDICATION
     Route: 048
     Dates: start: 20160528

REACTIONS (3)
  - Depressed mood [Not Recovered/Not Resolved]
  - Catatonia [Recovered/Resolved]
  - Retrograde amnesia [Recovered/Resolved]

NARRATIVE: CASE EVENT DATE: 20160528
